FAERS Safety Report 22541812 (Version 1)
Quarter: 2023Q2

REPORT INFORMATION
  Report Type: Spontaneous
  Country: JP (occurrence: JP)
  Receive Date: 20230609
  Receipt Date: 20230609
  Transmission Date: 20230721
  Serious: Yes (Other)
  Sender: FDA-Public Use
  Company Number: JP-ELI_LILLY_AND_COMPANY-JP202306001184AA

PATIENT

DRUGS (2)
  1. ZYPREXA [Suspect]
     Active Substance: OLANZAPINE
     Indication: Autism spectrum disorder
     Dosage: 1.3 MG, DAILY
     Route: 048
     Dates: end: 20230529
  2. ZYPREXA [Suspect]
     Active Substance: OLANZAPINE
     Dosage: 10.25 MG
     Route: 048

REACTIONS (8)
  - Tongue spasm [Unknown]
  - Akathisia [Unknown]
  - Tongue haemorrhage [Unknown]
  - Off label use [Unknown]
  - Swollen tongue [Unknown]
  - Hallucination [Unknown]
  - Pain [Unknown]
  - Hallucination, auditory [Unknown]
